FAERS Safety Report 9859058 (Version 1)
Quarter: 2014Q1

REPORT INFORMATION
  Report Type: Spontaneous
  Country: US (occurrence: US)
  Receive Date: 20140131
  Receipt Date: 20140131
  Transmission Date: 20141002
  Serious: Yes (Death)
  Sender: FDA-Public Use
  Company Number: CHPA2014US001526

PATIENT
  Age: 39 Year
  Sex: Male

DRUGS (12)
  1. DIPHENHYDRAMINE [Suspect]
     Route: 048
  2. DIPHENHYDRAMINE [Suspect]
     Dosage: UNK
     Route: 065
  3. FENTANYL [Suspect]
     Dosage: UNK
     Route: 048
  4. FENTANYL [Suspect]
     Dosage: UNK
     Route: 065
  5. CLONAZEPAM [Suspect]
     Route: 048
  6. CLONAZEPAM [Suspect]
     Dosage: UNK
     Route: 065
  7. HYDROCODONE [Suspect]
     Route: 048
  8. HYDROCODONE [Suspect]
     Dosage: UNK
     Route: 065
  9. TRAMADOL [Suspect]
     Route: 048
  10. TRAMADOL [Suspect]
     Dosage: UNK
     Route: 065
  11. SERTRALINE [Suspect]
     Route: 048
  12. SERTRALINE [Suspect]
     Dosage: UNK
     Route: 065

REACTIONS (1)
  - Intentional drug misuse [Fatal]
